FAERS Safety Report 14277869 (Version 3)
Quarter: 2018Q4

REPORT INFORMATION
  Report Type: Spontaneous
  Country: US (occurrence: US)
  Receive Date: 20171212
  Receipt Date: 20181023
  Transmission Date: 20190204
  Serious: No
  Sender: FDA-Public Use
  Company Number: US-PFIZER INC-2017527016

PATIENT
  Age: 68 Year
  Sex: Female

DRUGS (34)
  1. ESTRADIOL. [Concomitant]
     Active Substance: ESTRADIOL
     Indication: HOT FLUSH
     Dosage: 0.5 MG, DAILY
     Dates: start: 201802
  2. TRAMADOL HCL [Concomitant]
     Active Substance: TRAMADOL HYDROCHLORIDE
     Indication: POST-TRAUMATIC NECK SYNDROME
  3. TRAMADOL HCL [Concomitant]
     Active Substance: TRAMADOL HYDROCHLORIDE
     Indication: ROTATOR CUFF SYNDROME
  4. VITAMIN D3 [Concomitant]
     Active Substance: CHOLECALCIFEROL
     Indication: VITAMIN D DEFICIENCY
     Dosage: 5000 IU, DAILY [EACH DAY] [TAKE 5,000 UNITS BY MOUTH DAILY]
     Route: 048
  5. ARMOUR THYROID [Concomitant]
     Active Substance: THYROID, PORCINE
     Indication: HYPOTHYROIDISM
     Dosage: 60 MG, 1X/DAY (TAKE 1 TABLET BY MOUTH DAILY)
     Route: 048
  6. ZANAFLEX [Concomitant]
     Active Substance: TIZANIDINE HYDROCHLORIDE
     Indication: NECK PAIN
  7. ULTRAM [Concomitant]
     Active Substance: TRAMADOL HYDROCHLORIDE
     Indication: MYALGIA
  8. LORTAB [HYDROCODONE BITARTRATE;PARACETAMOL] [Concomitant]
     Indication: PAIN
     Dosage: 1 DF, AS NEEDED [HYDROCODONE BITARTRATE: 10 MG; PARACETAMOL: 325 MG] EVERY 6 HOURS
  9. TIZANIDINE. [Concomitant]
     Active Substance: TIZANIDINE
     Indication: NECK INJURY
  10. CALCIUM [Concomitant]
     Active Substance: CALCIUM
     Dosage: 2 DF, 2X/DAY
     Route: 048
  11. VOLTAREN [Concomitant]
     Active Substance: DICLOFENAC SODIUM
     Indication: PAIN
     Dosage: 4 G, AS NEEDED [APPLY 4 G TO THE SKIN 4 TIMES DAILY]
     Route: 061
  12. MOBIC [Concomitant]
     Active Substance: MELOXICAM
     Indication: ARTHRITIS
     Dosage: 15 MG, DAILY (TAKE 1 TABLET (15 MG) BY MOUTH DAILY)
     Route: 048
  13. LEVOTHYROXINE/LIOTHYRONINE [Concomitant]
     Indication: HYPOTHYROIDISM
     Dosage: 60 MG, DAILY
  14. PANTOPRAZOLE SODIUM. [Concomitant]
     Active Substance: PANTOPRAZOLE SODIUM
     Indication: GASTROOESOPHAGEAL REFLUX DISEASE
     Dosage: 80 MG, DAILY
     Dates: start: 2011
  15. ESTRACE [Concomitant]
     Active Substance: ESTRADIOL
     Indication: HOT FLUSH
     Dosage: 0.5 MG, DAILY
  16. CITALOPRAM [Concomitant]
     Active Substance: CITALOPRAM HYDROBROMIDE
     Indication: HOT FLUSH
     Dosage: 20 MG, DAILY
     Dates: start: 201802
  17. CALCIUM [Concomitant]
     Active Substance: CALCIUM
     Dosage: 500 MG, DAILY
  18. ULTRAM [Concomitant]
     Active Substance: TRAMADOL HYDROCHLORIDE
     Indication: ARTHRALGIA
     Dosage: 100 MG, AS NEEDED [EVERY 8 HOURS]
     Route: 048
  19. PANTOPRAZOLE SODIUM. [Concomitant]
     Active Substance: PANTOPRAZOLE SODIUM
     Dosage: 40 MG, 2X/DAY (TAKE 1 TABLET BY MOUTH 2 TIMES A DAY)
     Route: 048
  20. DELTASONE [PREDNISONE] [Concomitant]
     Dosage: 2.5 MG, 2X/DAY (TAKE 1 TABLET BY MOUTH 2 TIMES A DAY. )
     Route: 048
  21. DESYREL [Concomitant]
     Active Substance: TRAZODONE HYDROCHLORIDE
     Indication: SLEEP DISORDER
     Dosage: 100 MG, 1X/DAY (TAKE 1 TABLET BY MOUTH AT BEDTIME)
     Route: 048
  22. TYLENOL [Concomitant]
     Active Substance: ACETAMINOPHEN
     Dosage: 1000 MG, 3X/DAY (TAKE 1,000 MG BY MOUTH EVERY 8 HOURS)
     Route: 048
  23. ZANAFLEX [Concomitant]
     Active Substance: TIZANIDINE HYDROCHLORIDE
     Indication: MUSCLE SPASMS
  24. NEURONTIN [Concomitant]
     Active Substance: GABAPENTIN
     Indication: PAIN IN EXTREMITY
     Dosage: 100 MG, 2X/DAY
  25. TIZANIDINE. [Concomitant]
     Active Substance: TIZANIDINE
     Indication: BACK INJURY
     Dosage: 4 MG, 1X/DAY (AT NIGHT)
     Dates: start: 2007
  26. MELOXICAM. [Concomitant]
     Active Substance: MELOXICAM
     Dosage: 15 MG, DAILY
     Dates: start: 2013
  27. ACETAMINOPHEN;HYDROCODONE [Concomitant]
     Indication: PAIN
     Dosage: UNK UNK, AS NEEDED [ONLY USING RARELY]
  28. MACROBID [NITROFURANTOIN] [Concomitant]
     Indication: URINARY TRACT INFECTION
     Dosage: 100 MG, AS NEEDED (1 TAB PO BID X 5 DAYS PRN)
  29. CELEXA [Concomitant]
     Active Substance: CITALOPRAM HYDROBROMIDE
     Indication: HOT FLUSH
     Dosage: 20 MG, DAILY (TAKE 1 TABLET (20 MG) BY MOUTH DAILY)
     Route: 048
  30. NORCO [Concomitant]
     Active Substance: ACETAMINOPHEN\HYDROCODONE BITARTRATE
     Indication: PAIN
     Dosage: 1 DF, AS NEEDED [HYDROCODONE: 10 MG; ACETAMINOPHEN: 325 MG] EVERY 6 HOURS
     Route: 048
  31. ZANAFLEX [Concomitant]
     Active Substance: TIZANIDINE HYDROCHLORIDE
     Indication: BACK PAIN
     Dosage: 4 MG, AS NEEDED (TAKE 1 TABLET BY MOUTH EVERY 8 HOURS AS NEEDED)
     Route: 048
  32. METHOTREXATE SODIUM. [Suspect]
     Active Substance: METHOTREXATE SODIUM
     Indication: RHEUMATOID ARTHRITIS
     Dosage: 15 MG, WEEKLY [TAKE 6 TABLETS (15 MG) BY MOUTH ONCE A WEEK]
     Route: 048
     Dates: start: 201309
  33. XELJANZ [Concomitant]
     Active Substance: TOFACITINIB CITRATE
     Indication: RHEUMATOID ARTHRITIS
     Dosage: 5 MG, 2X/DAY (TAKE 1 TABLET (5 MG) BY MOUTH 2 TIMES A DAY)
     Route: 048
     Dates: start: 201805
  34. TRAMADOL HCL [Concomitant]
     Active Substance: TRAMADOL HYDROCHLORIDE
     Indication: RHEUMATOID ARTHRITIS
     Dosage: 50 MG, 2X/DAY

REACTIONS (4)
  - Drug ineffective [Recovering/Resolving]
  - Bursitis [Unknown]
  - Arthralgia [Unknown]
  - Alopecia [Unknown]

NARRATIVE: CASE EVENT DATE: 201711
